FAERS Safety Report 7506656-9 (Version None)
Quarter: 2011Q2

REPORT INFORMATION
  Report Type: 
  Country: None (occurrence: None)
  Receive Date: 20110526
  Receipt Date: 20110516
  Transmission Date: 20111010
  Serious: Yes (Other)
  Sender: FDA-Public Use
  Company Number: FR-JNJFOC-20110508175

PATIENT
  Sex: Female

DRUGS (1)
  1. HALDOL [Suspect]
     Indication: ABNORMAL BEHAVIOUR
     Dosage: 4 DROPS, TWICE A DAY
     Route: 048
     Dates: end: 20110223

REACTIONS (1)
  - THROMBOCYTOPENIA [None]
